FAERS Safety Report 14780410 (Version 3)
Quarter: 2018Q2

REPORT INFORMATION
  Report Type: Spontaneous
  Country: US (occurrence: US)
  Receive Date: 20180419
  Receipt Date: 20180612
  Transmission Date: 20180711
  Serious: Yes (Other)
  Sender: FDA-Public Use
  Company Number: US-KERYX BIOPHARMA UK LTD-2018US003895

PATIENT
  Age: 61 Year
  Sex: Female
  Weight: 100.5 kg

DRUGS (7)
  1. AURYXIA [Suspect]
     Active Substance: TETRAFERRIC TRICITRATE DECAHYDRATE
     Indication: HYPERPHOSPHATAEMIA
     Dosage: 2 G (2 TABLETS), TID WITH MEALS
     Route: 048
     Dates: start: 20160922, end: 20180322
  2. ARANESP [Concomitant]
     Active Substance: DARBEPOETIN ALFA
     Dosage: 10 MICRO-G, Q2WK
     Dates: start: 20160310, end: 20160407
  3. ATORVASTATIN [Concomitant]
     Active Substance: ATORVASTATIN
     Indication: HYPERLIPIDAEMIA
     Dosage: 40 MG, QD
     Route: 048
     Dates: end: 20180215
  4. ARANESP [Concomitant]
     Active Substance: DARBEPOETIN ALFA
     Dosage: 25 MICRO-G, Q2WK
     Dates: start: 20160421, end: 20160505
  5. ARANESP [Concomitant]
     Active Substance: DARBEPOETIN ALFA
     Dosage: 60 MICRO-G, Q2WK
     Dates: start: 20160630, end: 20161117
  6. FERRLECIT                          /00023541/ [Concomitant]
     Dosage: 62.5 MG, QWK
     Route: 042
     Dates: start: 20160811, end: 20161208
  7. ARANESP [Concomitant]
     Active Substance: DARBEPOETIN ALFA
     Dosage: 40 MICRO-G, Q2WK
     Dates: start: 20160519, end: 20160616

REACTIONS (2)
  - Iron overload [Not Recovered/Not Resolved]
  - Hepatic siderosis [Not Recovered/Not Resolved]

NARRATIVE: CASE EVENT DATE: 20180316
